FAERS Safety Report 25267485 (Version 2)
Quarter: 2025Q3

REPORT INFORMATION
  Report Type: Report from Study
  Country: US (occurrence: US)
  Receive Date: 20250505
  Receipt Date: 20250724
  Transmission Date: 20251021
  Serious: No
  Sender: ACADIA PHARMACEUTICALS
  Company Number: US-ACADIA PHARMACEUTICALS INC.-ACA-2025-TRF-004886

PATIENT
  Sex: Female

DRUGS (2)
  1. DAYBUE [Suspect]
     Active Substance: TROFINETIDE
     Indication: Rett syndrome
     Dosage: 40 MILLILITER, BID
  2. PEDIALYTE [CITRIC ACID;GLUCOSE;POTASSIUM CHLORIDE;SODIUM CHLORIDE] [Concomitant]
     Indication: Diarrhoea

REACTIONS (1)
  - Diarrhoea [Not Recovered/Not Resolved]
